FAERS Safety Report 17841051 (Version 4)
Quarter: 2023Q1

REPORT INFORMATION
  Report Type: Spontaneous
  Country: US (occurrence: US)
  Receive Date: 20200529
  Receipt Date: 20230103
  Transmission Date: 20230418
  Serious: Yes (Other)
  Sender: FDA-Public Use
  Company Number: US-PFIZER INC-2020086758

PATIENT
  Age: 72 Year
  Sex: Female

DRUGS (1)
  1. XELJANZ XR [Suspect]
     Active Substance: TOFACITINIB CITRATE
     Indication: Psoriatic arthropathy
     Dosage: 11 MG, DAILY
     Route: 048
     Dates: start: 20191120, end: 202211

REACTIONS (4)
  - Psoriatic arthropathy [Unknown]
  - Product dose omission issue [Unknown]
  - Genital herpes [Unknown]
  - Pain [Unknown]

NARRATIVE: CASE EVENT DATE: 20220101
